FAERS Safety Report 9507065 (Version 1)
Quarter: 2013Q1

REPORT INFORMATION
  Report Type: Spontaneous
  Country: US (occurrence: None)
  Receive Date: 20130305
  Receipt Date: 20130305
  Transmission Date: 20140127
  Serious: Yes (Hospitalization, Other)
  Sender: FDA-Public Use
  Company Number: 163-21880-12050653

PATIENT
  Age: 80 Year
  Sex: Male
  Weight: 75.75 kg

DRUGS (12)
  1. REVLIMID (LENALIDOMIDE) (CAPSULES) [Suspect]
     Indication: PLASMA CELL MYELOMA
     Dosage: 15 MG, DAILYX 21 DAYS, PO
     Route: 048
     Dates: start: 20110516, end: 20120404
  2. ALPHAGAN SOL (BRIMONIDINE TARTRATE) (UNKNOWN) [Concomitant]
  3. ASACOL (MESALAZINE) (UNKNOWN) [Concomitant]
  4. ASPIRIN (ACETYLSALICYLIC ACID) (UNKNOWN) (ACETYLSALICYLIC ACID) [Concomitant]
  5. CALCIUM / D(LEKOVIT CA) (UNKNOWN) [Concomitant]
  6. DIGOXIN (DIGOXIN) (UNKNOWN) (DIGOXIN) [Concomitant]
  7. DOCULASE (DOCUSATE) (UNKNOWN) [Concomitant]
  8. MIRALAX (MACROGOL) (UNKNOWN) [Concomitant]
  9. MULTIVITAMIN (MULTIVITAMINS) (UNKNOWN) [Concomitant]
  10. OMERAZOLE (OMEPRAZOLE) (UNKNOWN) [Concomitant]
  11. VITAMIN C [Concomitant]
  12. VYTORIN (INEGY) (UNKNOWN) [Concomitant]

REACTIONS (5)
  - Bronchitis [None]
  - Diarrhoea [None]
  - Dehydration [None]
  - Weight decreased [None]
  - Asthenia [None]
